FAERS Safety Report 9843890 (Version 1)
Quarter: 2013Q4

REPORT INFORMATION
  Report Type: Spontaneous
  Country: US (occurrence: None)
  Receive Date: 20131223
  Receipt Date: 20131223
  Transmission Date: 20140711
  Serious: No
  Sender: FDA-Public Use
  Company Number: 1000048843

PATIENT
  Age: 69 Year
  Sex: Female

DRUGS (4)
  1. LINZESS (LINACLOTIDE) (290 MICROGRAM, CAPSULES) [Suspect]
     Indication: CONSTIPATION
     Route: 048
     Dates: start: 20130913
  2. BENICAR (OLMESARTAN MEDOXOMIL) [Concomitant]
  3. PANTOPRAZOLE [Concomitant]
  4. CLONAZEPAM [Concomitant]

REACTIONS (1)
  - Diarrhoea [None]
